FAERS Safety Report 9506161 (Version 1)
Quarter: 2013Q1

REPORT INFORMATION
  Report Type: Spontaneous
  Country: US (occurrence: None)
  Receive Date: 20130305
  Receipt Date: 20130305
  Transmission Date: 20140127
  Serious: Yes (Other)
  Sender: FDA-Public Use
  Company Number: 163-21880-11063704

PATIENT
  Age: 51 Year
  Sex: Male
  Weight: 82 kg

DRUGS (7)
  1. REVLIMID [Suspect]
     Indication: PLASMA CELL MYELOMA
     Route: 048
     Dates: start: 20100503, end: 20100726
  2. MAGNESIUM(MAGNESIUM) [Concomitant]
  3. ASA(ACETYLSASLICYLIC ACID) [Concomitant]
  4. ZOMETA(ZOLEDRONIC) [Concomitant]
  5. MAGNESIUM(MAGNESIUM) [Concomitant]
  6. ASA(ACETYLSALICYLIC ACID) [Concomitant]
  7. ZOMETA(ZOLEDRONIC ACID) [Concomitant]

REACTIONS (2)
  - Fatigue [None]
  - Back pain [None]
